FAERS Safety Report 17701221 (Version 2)
Quarter: 2020Q2

REPORT INFORMATION
  Report Type: Report from Study
  Country: CA (occurrence: CA)
  Receive Date: 20200423
  Receipt Date: 20200430
  Transmission Date: 20200714
  Serious: Yes (Hospitalization)
  Sender: FDA-Public Use
  Company Number: CA-TAIHO ONCOLOGY  INC-EU-2020-01368

PATIENT
  Sex: Female
  Weight: 46.8 kg

DRUGS (1)
  1. LONSURF [Suspect]
     Active Substance: TIPIRACIL HYDROCHLORIDE\TRIFLURIDINE
     Indication: COLORECTAL CANCER METASTATIC
     Dosage: CYCLE 1 TO 3
     Route: 048
     Dates: start: 20200113, end: 20200412

REACTIONS (2)
  - Blood bilirubin increased [Unknown]
  - Disease progression [Unknown]

NARRATIVE: CASE EVENT DATE: 2020
